FAERS Safety Report 15791372 (Version 2)
Quarter: 2019Q1

REPORT INFORMATION
  Report Type: Report from Study
  Country: US (occurrence: US)
  Receive Date: 20190104
  Receipt Date: 20190207
  Transmission Date: 20190417
  Serious: Yes (Other)
  Sender: FDA-Public Use
  Company Number: US-MYLANLABS-2018M1089540

PATIENT

DRUGS (2)
  1. TEGATOL [Concomitant]
     Indication: SEIZURE
     Dosage: UNK, BID (ONCE IN THE MORNING ONCE AT NIGHT)
  2. GLATIRAMER ACETATE INJECTION [Suspect]
     Active Substance: GLATIRAMER ACETATE
     Indication: RELAPSING-REMITTING MULTIPLE SCLEROSIS
     Dosage: UNK
     Route: 058

REACTIONS (3)
  - Diplopia [Unknown]
  - Vertigo [Unknown]
  - Drug ineffective [Unknown]

NARRATIVE: CASE EVENT DATE: 20181123
